FAERS Safety Report 4680308-5 (Version None)
Quarter: 2005Q2

REPORT INFORMATION
  Report Type: 
  Country: None (occurrence: None)
  Receive Date: 20050602
  Receipt Date: 20050524
  Transmission Date: 20051028
  Serious: Yes (Hospitalization)
  Sender: FDA-Public Use
  Company Number: US-ABBOTT-05P-163-0301319-00

PATIENT
  Sex: Male

DRUGS (5)
  1. RITONAVIR SOFT GELATIN CAPSULES [Suspect]
     Indication: HIV INFECTION
     Route: 048
     Dates: start: 20050317
  2. TIPRANAVIR [Concomitant]
     Indication: HIV INFECTION
     Route: 048
     Dates: start: 20050317
  3. AMPRENAVIR [Concomitant]
     Indication: HIV INFECTION
     Route: 048
  4. FUZEON [Concomitant]
     Indication: HIV INFECTION
     Route: 058
  5. TRIZAVIR [Concomitant]
     Indication: HIV INFECTION
     Route: 048

REACTIONS (5)
  - CLOSTRIDIUM DIFFICILE TOXIN TEST POSITIVE [None]
  - DYSPNOEA [None]
  - GENERALISED OEDEMA [None]
  - SINUS TACHYCARDIA [None]
  - SINUSITIS [None]
